FAERS Safety Report 9747936 (Version 1)
Quarter: 2013Q4

REPORT INFORMATION
  Report Type: Spontaneous
  Country: US (occurrence: None)
  Receive Date: 20131211
  Receipt Date: 20131211
  Transmission Date: 20140711
  Serious: Yes (Other)
  Sender: FDA-Public Use
  Company Number: None

PATIENT
  Age: 65 Year
  Sex: Female
  Weight: 99.79 kg

DRUGS (13)
  1. DOXAZOSIN MESYLATE [Suspect]
     Indication: HYPERTENSION
     Dosage: BEDTIME, BY MOUTH
     Dates: start: 20130822, end: 20131205
  2. DOXAZOSIN MESYLATE [Suspect]
     Indication: DIABETES MELLITUS
     Dosage: BEDTIME, BY MOUTH
     Dates: start: 20130822, end: 20131205
  3. DOXAZOSIN MESYLATE [Suspect]
     Indication: THYROID DISORDER
     Dosage: BEDTIME, BY MOUTH
     Dates: start: 20130822, end: 20131205
  4. LEVOTHYROXINE [Concomitant]
  5. OMEPRAZOLE [Concomitant]
  6. B ENAZEPRIL [Concomitant]
  7. AMLODIPINE [Concomitant]
  8. LORAZEPAM [Concomitant]
  9. METOPROLOL [Concomitant]
  10. INSULIN [Concomitant]
  11. ALEVE [Concomitant]
  12. IBUPROFEN [Concomitant]
  13. ONE-A DAY VITAMIN [Concomitant]

REACTIONS (1)
  - Respiratory tract infection [None]
